FAERS Safety Report 24588631 (Version 1)
Quarter: 2024Q4

REPORT INFORMATION
  Report Type: Spontaneous
  Country: TW (occurrence: TW)
  Receive Date: 20241107
  Receipt Date: 20241107
  Transmission Date: 20250115
  Serious: Yes (Other)
  Sender: MYLAN
  Company Number: TW-MYLANLABS-2024M1099920

PATIENT
  Age: 19 Year
  Sex: Female

DRUGS (4)
  1. FLUOROURACIL [Suspect]
     Active Substance: FLUOROURACIL
     Indication: Solid pseudopapillary tumour of the pancreas
     Dosage: UNK, Q3W; 4 CYCLES; PART OF FOLFIRINOX REGIMEN
     Route: 065
  2. IRINOTECAN [Suspect]
     Active Substance: IRINOTECAN
     Indication: Solid pseudopapillary tumour of the pancreas
     Dosage: UNK, Q3W; 4 CYCLES
     Route: 065
  3. OXALIPLATIN [Suspect]
     Active Substance: OXALIPLATIN
     Indication: Solid pseudopapillary tumour of the pancreas
     Dosage: UNK, Q3W, 4 CYCLES
     Route: 065
  4. LEUCOVORIN [Suspect]
     Active Substance: LEUCOVORIN\LEUCOVORIN CALCIUM
     Indication: Solid pseudopapillary tumour of the pancreas
     Dosage: UNK, Q3W,  4 CYCLES AT EVERY 3 WEEKS INTERVAL
     Route: 065

REACTIONS (1)
  - Drug ineffective [Unknown]
